FAERS Safety Report 6805201-0 (Version None)
Quarter: 2010Q2

REPORT INFORMATION
  Report Type: 
  Country: None (occurrence: None)
  Receive Date: 20100628
  Receipt Date: 20071126
  Transmission Date: 20101027
  Serious: No
  Sender: FDA-Public Use
  Company Number: US-PFIZER INC-2007046886

PATIENT
  Sex: Female

DRUGS (11)
  1. XALATAN [Suspect]
     Indication: OPEN ANGLE GLAUCOMA
     Route: 047
     Dates: start: 20040308
  2. BETOPTIC [Concomitant]
     Route: 047
  3. AZOPT [Concomitant]
     Route: 047
  4. ACETYLSALICYLIC ACID [Concomitant]
  5. VIVELLE [Concomitant]
  6. PROVERA [Concomitant]
  7. VITAMIN C [Concomitant]
  8. VITAMIN E [Concomitant]
  9. ICAPS [Concomitant]
  10. FISH OIL [Concomitant]
  11. COD-LIVER OIL [Concomitant]

REACTIONS (2)
  - DRUG INEFFECTIVE [None]
  - MEDICATION ERROR [None]
